FAERS Safety Report 25651104 (Version 1)
Quarter: 2025Q3

REPORT INFORMATION
  Report Type: Spontaneous
  Country: US (occurrence: None)
  Receive Date: 20250806
  Receipt Date: 20250806
  Transmission Date: 20251021
  Serious: Yes (Hospitalization)
  Sender: FDA-CTU
  Company Number: None

PATIENT
  Age: 45 Year
  Sex: Male
  Weight: 69.3 kg

DRUGS (5)
  1. RENFLEXIS [Suspect]
     Active Substance: INFLIXIMAB-ABDA
     Indication: Rheumatoid arthritis
     Route: 042
  2. INFLIXIMAB-ABDA [Suspect]
     Active Substance: INFLIXIMAB-ABDA
     Indication: Rheumatoid arthritis
     Route: 042
  3. ISOVUE 370 [Suspect]
     Active Substance: IOPAMIDOL
     Dates: start: 20250801, end: 20250801
  4. sterile water injection (IV) [Concomitant]
     Dates: start: 20250801, end: 20250801
  5. sodium chloride 0.9 % infusion (IV) [Concomitant]

REACTIONS (6)
  - Agonal respiration [None]
  - Agonal rhythm [None]
  - Pulse absent [None]
  - Ventricular fibrillation [None]
  - Discomfort [None]
  - Chest pain [None]

NARRATIVE: CASE EVENT DATE: 20250804
